FAERS Safety Report 9482133 (Version 3)
Quarter: 2013Q4

REPORT INFORMATION
  Report Type: Report from Study
  Country: US (occurrence: US)
  Receive Date: 20130828
  Receipt Date: 20131029
  Transmission Date: 20140711
  Serious: No
  Sender: FDA-Public Use
  Company Number: PHEH2013US015729

PATIENT
  Age: 36 Year
  Sex: Female

DRUGS (3)
  1. SIGNIFOR [Suspect]
     Indication: PITUITARY-DEPENDENT CUSHING^S SYNDROME
     Dosage: 0.3 MG, BID
     Route: 058
     Dates: start: 20130714
  2. MULTIPLE VITAMINS [Concomitant]
  3. LEVOTHYROXINE [Concomitant]
     Dosage: 50 UG, QD
     Route: 048

REACTIONS (4)
  - Full blood count increased [Not Recovered/Not Resolved]
  - Blood glucose increased [Recovering/Resolving]
  - Erythema [Not Recovered/Not Resolved]
  - Pruritus [Not Recovered/Not Resolved]
